FAERS Safety Report 24576042 (Version 1)
Quarter: 2024Q4

REPORT INFORMATION
  Report Type: Spontaneous
  Country: US (occurrence: None)
  Receive Date: 20241101
  Receipt Date: 20241101
  Transmission Date: 20250115
  Serious: Yes (Hospitalization, Disabling)
  Sender: Public
  Company Number: None

PATIENT
  Age: 27 Year
  Sex: Female
  Weight: 78.75 kg

DRUGS (6)
  1. FAMOTIDINE [Suspect]
     Active Substance: FAMOTIDINE
     Indication: Gastrooesophageal reflux disease
     Dosage: 60 TABLETS AT BEDTIME ORAL
     Route: 048
     Dates: start: 20240301, end: 20241027
  2. LACTASE [Concomitant]
     Active Substance: LACTASE
  3. DIGESTIVE ADVANTAGE IBS [Concomitant]
  4. PEPPERMINT [Concomitant]
     Active Substance: PEPPERMINT
  5. FENNEL [Concomitant]
     Active Substance: FENNEL
  6. GINGER [Concomitant]
     Active Substance: GINGER

REACTIONS (10)
  - Diarrhoea [None]
  - Nausea [None]
  - Muscle spasms [None]
  - Fatigue [None]
  - Dizziness [None]
  - Confusional state [None]
  - Asthenia [None]
  - Weight decreased [None]
  - Vaginal haemorrhage [None]
  - Dehydration [None]

NARRATIVE: CASE EVENT DATE: 20240301
